FAERS Safety Report 9748698 (Version 4)
Quarter: 2014Q4

REPORT INFORMATION
  Report Type: Spontaneous
  Country: US (occurrence: US)
  Receive Date: 20131212
  Receipt Date: 20141002
  Transmission Date: 20150529
  Serious: Yes (Other)
  Sender: FDA-Public Use
  Company Number: US-BAYER-2013-150426

PATIENT
  Age: 46 Year
  Sex: Female

DRUGS (1)
  1. MIRENA [Suspect]
     Active Substance: LEVONORGESTREL
     Indication: CONTRACEPTION
     Dosage: 20 MCG/24HR, CONT
     Route: 015
     Dates: start: 200812

REACTIONS (6)
  - Embedded device [Not Recovered/Not Resolved]
  - Procedural haemorrhage [None]
  - Device breakage [None]
  - Complication of device removal [None]
  - Device dislocation [None]
  - Procedural pain [None]

NARRATIVE: CASE EVENT DATE: 20131204
